FAERS Safety Report 8017623-3 (Version None)
Quarter: 2012Q1

REPORT INFORMATION
  Report Type: 
  Country: None (occurrence: None)
  Receive Date: 20120103
  Receipt Date: 20111221
  Transmission Date: 20120608
  Serious: Yes (Death, Other)
  Sender: FDA-Public Use
  Company Number: SK-ELI_LILLY_AND_COMPANY-SK201112004154

PATIENT
  Age: 57 Year
  Sex: Male

DRUGS (6)
  1. FORTEO [Suspect]
     Indication: OSTEOPOROSIS
     Dosage: 20 UG, QD
     Route: 058
     Dates: start: 20100707, end: 20111204
  2. CALTRATE PLUS                      /06018001/ [Concomitant]
  3. ANTIEPILEPTICS [Concomitant]
     Indication: EPILEPSY
  4. QUINAPRIL HCL [Concomitant]
  5. AFLAMIN [Concomitant]
  6. LODOZ                              /01166101/ [Concomitant]

REACTIONS (3)
  - MYOCARDIAL INFARCTION [None]
  - CEREBROVASCULAR ACCIDENT [None]
  - THORACIC HAEMORRHAGE [None]
